FAERS Safety Report 18193771 (Version 1)
Quarter: 2020Q3

REPORT INFORMATION
  Report Type: Report from Study
  Country: CN (occurrence: CN)
  Receive Date: 20200825
  Receipt Date: 20200825
  Transmission Date: 20201103
  Serious: Yes (Hospitalization)
  Sender: FDA-Public Use
  Company Number: NVSC2020CN231543

PATIENT
  Age: 30 Year
  Sex: Male
  Weight: 93.6 kg

DRUGS (1)
  1. ENTRESTO [Suspect]
     Active Substance: SACUBITRIL\VALSARTAN
     Indication: CARDIAC FAILURE
     Dosage: 100 MG, BID
     Route: 048
     Dates: start: 20200701

REACTIONS (7)
  - Tachypnoea [Recovered/Resolved]
  - Oedema peripheral [Recovered/Resolved]
  - Abdominal distension [Recovering/Resolving]
  - Cardiac failure chronic [Recovering/Resolving]
  - Orthopnoea [Recovering/Resolving]
  - Chest discomfort [Recovered/Resolved]
  - Diarrhoea [Recovering/Resolving]

NARRATIVE: CASE EVENT DATE: 20200805
